FAERS Safety Report 16727821 (Version 2)
Quarter: 2019Q3

REPORT INFORMATION
  Report Type: Spontaneous
  Country: FR (occurrence: FR)
  Receive Date: 20190822
  Receipt Date: 20190829
  Transmission Date: 20191005
  Serious: Yes (Other)
  Sender: FDA-Public Use
  Company Number: FR-EMD SERONO-E2B_90070192

PATIENT
  Age: 74 Year
  Sex: Male
  Weight: 140 kg

DRUGS (7)
  1. ABASAGLAR [Interacting]
     Active Substance: INSULIN GLARGINE
     Dosage: DOSE REDUCED
     Route: 058
  2. METFORMIN [Suspect]
     Active Substance: METFORMIN HYDROCHLORIDE
     Indication: DIABETES MELLITUS
     Route: 048
  3. VICTOZA [Interacting]
     Active Substance: LIRAGLUTIDE
     Indication: DIABETES MELLITUS
     Route: 058
     Dates: start: 20190624
  4. ABASAGLAR [Interacting]
     Active Substance: INSULIN GLARGINE
     Indication: DIABETES MELLITUS
     Dosage: UNKNOWN DOSE
     Route: 058
     Dates: start: 20190624
  5. AMOXICILLINE                       /00249602/ [Concomitant]
     Active Substance: AMOXICILLIN
     Indication: OSTEITIS
     Route: 048
     Dates: start: 20190709, end: 20190723
  6. HUMALOG [Interacting]
     Active Substance: INSULIN LISPRO
     Indication: DIABETES MELLITUS
     Route: 058
  7. OFLOXACINE [Interacting]
     Active Substance: OFLOXACIN
     Indication: OSTEITIS
     Route: 048
     Dates: start: 20190709, end: 20190723

REACTIONS (2)
  - Hypoglycaemia [Recovered/Resolved]
  - Drug interaction [Recovered/Resolved]

NARRATIVE: CASE EVENT DATE: 20190711
